FAERS Safety Report 6382177-4 (Version None)
Quarter: 2009Q3

REPORT INFORMATION
  Report Type: 
  Country: None (occurrence: None)
  Receive Date: 20090930
  Receipt Date: 20090917
  Transmission Date: 20100115
  Serious: Yes (Hospitalization)
  Sender: FDA-Public Use
  Company Number: DK-PFIZER INC-2009175905

PATIENT
  Age: 28 Year

DRUGS (7)
  1. ZOLOFT [Suspect]
     Indication: DEPRESSION
     Dosage: 100 MG, UNK
     Route: 048
     Dates: start: 20081220
  2. DESORELLE [Interacting]
     Indication: CONTRACEPTION
     Dosage: UNK
     Route: 048
     Dates: start: 20080517, end: 20090204
  3. LAMICTAL [Interacting]
     Indication: MIGRAINE
     Dosage: 200 MG, 1X/DAY
     Route: 048
     Dates: start: 20081220
  4. CETIRIZINE [Concomitant]
     Indication: URTICARIA
  5. DERMOVAT [Concomitant]
     Indication: SKIN DISORDER
     Dosage: UNK
     Route: 003
     Dates: start: 20081217
  6. DOLOL [Concomitant]
     Indication: PAIN
     Dosage: 50 MG, 2X/DAY
     Route: 048
     Dates: start: 20080403
  7. IBUPROFEN [Concomitant]
     Indication: PAIN
     Dosage: 400 MG, 3X/DAY
     Dates: start: 20071214

REACTIONS (6)
  - DRUG EXPOSURE DURING PREGNANCY [None]
  - DRUG INEFFECTIVE [None]
  - DRUG INTERACTION [None]
  - ECTOPIC PREGNANCY [None]
  - PREGNANCY ON ORAL CONTRACEPTIVE [None]
  - UNINTENDED PREGNANCY [None]
